FAERS Safety Report 5239023-1 (Version None)
Quarter: 2007Q1

REPORT INFORMATION
  Report Type: 
  Country: None (occurrence: None)
  Receive Date: 20070209
  Receipt Date: 20070130
  Transmission Date: 20070707
  Serious: Yes (Hospitalization)
  Sender: FDA-Public Use
  Company Number: MEDI-0005365

PATIENT
  Age: 48 Year
  Sex: Male
  Weight: 67.9942 kg

DRUGS (10)
  1. ETHYOL [Suspect]
     Indication: RADIOTHERAPY
     Dosage: 500 MG, 1 IN 1 D, SUBCUTANEOUS
     Route: 058
     Dates: start: 20070117, end: 20070117
  2. ETHYOL [Suspect]
     Indication: RADIOTHERAPY
     Dosage: 500 MG, 1 IN 1 D, SUBCUTANEOUS
     Route: 058
     Dates: start: 20070119, end: 20070119
  3. ETHYOL [Suspect]
     Indication: RADIOTHERAPY
     Dosage: 500 MG, 1 IN 1 D, SUBCUTANEOUS
     Route: 058
     Dates: start: 20070123, end: 20070123
  4. ETHYOL [Suspect]
     Indication: RADIOTHERAPY
     Dosage: 500 MG, 1 IN 1 D, SUBCUTANEOUS
     Route: 058
     Dates: start: 20070129, end: 20070129
  5. RADIATION THERAPY [Concomitant]
  6. COMPAZINE [Concomitant]
  7. MORPHINE ER (MORPHINE) [Concomitant]
  8. REGLAN [Concomitant]
  9. PREVACID [Concomitant]
  10. VICODIN [Concomitant]

REACTIONS (5)
  - LETHARGY [None]
  - NAUSEA [None]
  - PYREXIA [None]
  - RASH [None]
  - VOMITING [None]
